FAERS Safety Report 6697532-2 (Version None)
Quarter: 2010Q2

REPORT INFORMATION
  Report Type: 
  Country: None (occurrence: None)
  Receive Date: 20100420
  Receipt Date: 20090616
  Transmission Date: 20101027
  Serious: Yes (Other)
  Sender: FDA-Public Use
  Company Number: SPV1-2009-00239

PATIENT
  Sex: Female

DRUGS (1)
  1. LIALDA [Suspect]
     Dosage: G, ORAL
     Route: 048
     Dates: start: 20081101, end: 20081201

REACTIONS (1)
  - PANCREATITIS [None]
